FAERS Safety Report 25021029 (Version 1)
Quarter: 2025Q1

REPORT INFORMATION
  Report Type: Report from Study
  Country: FR (occurrence: FR)
  Receive Date: 20250227
  Receipt Date: 20250227
  Transmission Date: 20250409
  Serious: No
  Sender: SANDOZ
  Company Number: FR-SANDOZ-SDZ2024FR009569

PATIENT
  Age: 14 Year
  Sex: Male

DRUGS (1)
  1. OMNITROPE [Suspect]
     Active Substance: SOMATROPIN
     Indication: Product used for unknown indication
     Route: 058
     Dates: end: 20240125

REACTIONS (2)
  - Circumstance or information capable of leading to device use error [Unknown]
  - Device defective [Unknown]

NARRATIVE: CASE EVENT DATE: 20240125
